FAERS Safety Report 5993901-4 (Version None)
Quarter: 2008Q4

REPORT INFORMATION
  Report Type: 
  Country: None (occurrence: None)
  Receive Date: 20081212
  Receipt Date: 20080922
  Transmission Date: 20090506
  Serious: No
  Sender: FDA-Public Use
  Company Number: US-ABBOTT-08P-163-0465362-00

PATIENT
  Sex: Female
  Weight: 72.64 kg

DRUGS (8)
  1. HUMIRA [Suspect]
     Indication: PSORIASIS
     Route: 058
     Dates: start: 20080401, end: 20080601
  2. HUMIRA [Suspect]
     Dates: start: 20080601
  3. CITALOPRAM HYDROBROMIDE [Concomitant]
     Indication: DEPRESSION
     Route: 048
     Dates: start: 20080601
  4. LORAZEPAM [Concomitant]
     Indication: NERVOUSNESS
     Route: 048
  5. METHOTREXATE [Concomitant]
     Indication: PSORIASIS
     Dosage: 4 TABLETS IN ONE WEEK
     Route: 048
     Dates: start: 20080701
  6. FOLIC ACID [Concomitant]
     Indication: PSORIASIS
     Route: 048
     Dates: start: 20080701
  7. LOBETASOL [Concomitant]
     Indication: PSORIASIS
     Route: 061
     Dates: start: 20080601
  8. BUPROPION HCL [Concomitant]
     Indication: DEPRESSION
     Dates: start: 20080601

REACTIONS (3)
  - DRUG INEFFECTIVE [None]
  - PSORIASIS [None]
  - RASH [None]
